FAERS Safety Report 6686340-4 (Version None)
Quarter: 2010Q2

REPORT INFORMATION
  Report Type: 
  Country: None (occurrence: None)
  Receive Date: 20100414
  Receipt Date: 20100328
  Transmission Date: 20101027
  Serious: Yes (Other)
  Sender: FDA-Public Use
  Company Number: 7000126

PATIENT

DRUGS (1)
  1. SAIZEN [Suspect]

REACTIONS (1)
  - BENIGN INTRACRANIAL HYPERTENSION [None]
